FAERS Safety Report 20432255 (Version 1)
Quarter: 2022Q1

REPORT INFORMATION
  Report Type: Spontaneous
  Country: US (occurrence: US)
  Receive Date: 20220204
  Receipt Date: 20220204
  Transmission Date: 20220423
  Serious: Yes (Hospitalization)
  Sender: FDA-Public Use
  Company Number: US-MALLINCKRODT-T202200424

PATIENT
  Age: 0 Year
  Sex: Male

DRUGS (3)
  1. H.P. ACTHAR [Suspect]
     Active Substance: CORTICOTROPIN
     Indication: Infantile spasms
     Dosage: 0.35 MILLILITER, BID, DAY 1 TO 14
     Route: 030
     Dates: start: 20220124
  2. FAMOTIDINE [Concomitant]
     Active Substance: FAMOTIDINE
     Indication: Product used for unknown indication
     Dosage: UNK, 100% POWDER
     Route: 065
  3. SABRIL [Concomitant]
     Active Substance: VIGABATRIN
     Indication: Product used for unknown indication
     Dosage: UNK, POWD PACK
     Route: 065

REACTIONS (5)
  - Hospitalisation [Not Recovered/Not Resolved]
  - Somnolence [Unknown]
  - Increased appetite [Unknown]
  - Abnormal behaviour [Unknown]
  - Irritability [Unknown]

NARRATIVE: CASE EVENT DATE: 20220101
